FAERS Safety Report 6789495-6 (Version None)
Quarter: 2010Q2

REPORT INFORMATION
  Report Type: 
  Country: None (occurrence: None)
  Receive Date: 20100624
  Receipt Date: 20100621
  Transmission Date: 20101027
  Serious: Yes (Hospitalization)
  Sender: FDA-Public Use
  Company Number: US-BIOGENIDEC-2010BI017604

PATIENT
  Age: 41 Year
  Sex: Female

DRUGS (1)
  1. TYSABRI [Suspect]
     Indication: MULTIPLE SCLEROSIS
     Route: 042
     Dates: start: 20080110

REACTIONS (5)
  - CERVICAL DYSPLASIA [None]
  - FATIGUE [None]
  - HUMAN PAPILLOMA VIRUS TEST POSITIVE [None]
  - MULTIPLE SCLEROSIS RELAPSE [None]
  - UTERINE CANCER [None]
